FAERS Safety Report 8973191 (Version 1)
Quarter: 2012Q4

REPORT INFORMATION
  Report Type: 
  Country: GB (occurrence: GB)
  Receive Date: 20121219
  Receipt Date: 20121219
  Transmission Date: 20130627
  Serious: Yes (Disabling, Other)
  Sender: FDA-Public Use
  Company Number: GB-MYLANLABS-2012S1025239

PATIENT
  Age: 33 Year
  Sex: Female
  Weight: 62 kg

DRUGS (1)
  1. TERBINAFINE [Suspect]
     Indication: ONYCHOMYCOSIS
     Route: 048
     Dates: start: 20120723, end: 20120807

REACTIONS (3)
  - Depression [Not Recovered/Not Resolved]
  - Anosmia [Not Recovered/Not Resolved]
  - Ageusia [Not Recovered/Not Resolved]
